FAERS Safety Report 8674190 (Version 2)
Quarter: 2013Q2

REPORT INFORMATION
  Report Type: Report from Study
  Country: RU (occurrence: RU)
  Receive Date: 20120719
  Receipt Date: 20130426
  Transmission Date: 20140414
  Serious: Yes (Life-Threatening, Hospitalization, Other)
  Sender: FDA-Public Use
  Company Number: RU-ABBOTT-12P-251-0956610-00

PATIENT
  Age: 30 Year
  Sex: Female

DRUGS (1)
  1. ZEMPLAR INJECTION [Suspect]
     Indication: HYPERPARATHYROIDISM SECONDARY
     Dosage: 2.5 MKG THREE TIMES A WEEK
     Route: 042
     Dates: start: 20120505, end: 20120523

REACTIONS (1)
  - Renal haematoma [Recovered/Resolved]
